FAERS Safety Report 7311507-1 (Version None)
Quarter: 2011Q1

REPORT INFORMATION
  Report Type: 
  Country: None (occurrence: None)
  Receive Date: 20110224
  Receipt Date: 20110106
  Transmission Date: 20110831
  Serious: Yes (Congenital Anomaly)
  Sender: FDA-Public Use
  Company Number: US-GILEAD-2010-0034662

PATIENT
  Sex: Female

DRUGS (3)
  1. TRUVADA [Suspect]
     Indication: HIV INFECTION
     Route: 064
     Dates: start: 20091117
  2. LABETALOL HCL [Concomitant]
     Route: 064
  3. ISENTRESS [Concomitant]
     Indication: HIV INFECTION
     Route: 064
     Dates: start: 20091117

REACTIONS (2)
  - DUODENAL ATRESIA [None]
  - VENTRICULAR SEPTAL DEFECT [None]
